FAERS Safety Report 6519977-3 (Version None)
Quarter: 2009Q4

REPORT INFORMATION
  Report Type: 
  Country: None (occurrence: None)
  Receive Date: 20091229
  Receipt Date: 20091214
  Transmission Date: 20100525
  Serious: Yes (Other)
  Sender: FDA-Public Use
  Company Number: US-JNJFOC-20091204820

PATIENT
  Sex: Male
  Weight: 90.72 kg

DRUGS (9)
  1. LEVAQUIN [Suspect]
     Indication: DRUG USE FOR UNKNOWN INDICATION
     Dosage: COURSE COMPLETED
     Route: 048
  2. LEVAQUIN [Suspect]
     Route: 048
  3. LEVAQUIN [Suspect]
     Route: 048
  4. LEVAQUIN [Suspect]
     Indication: URINARY TRACT INFECTION
     Route: 048
  5. LEVAQUIN [Suspect]
     Route: 048
  6. LEVAQUIN [Suspect]
     Dosage: COURSE COMPLETED
     Route: 048
  7. PREDNISONE [Concomitant]
     Indication: OSTEOARTHRITIS
     Route: 048
  8. NAPROSYN [Concomitant]
     Indication: OSTEOARTHRITIS
     Route: 048
  9. AZULFIDINE [Concomitant]
     Indication: OSTEOARTHRITIS
     Route: 048

REACTIONS (6)
  - ACTIVITIES OF DAILY LIVING IMPAIRED [None]
  - HYPOAESTHESIA [None]
  - JOINT SWELLING [None]
  - OEDEMA PERIPHERAL [None]
  - OSTEOARTHRITIS [None]
  - PARAESTHESIA [None]
